FAERS Safety Report 5327309-1 (Version None)
Quarter: 2007Q2

REPORT INFORMATION
  Report Type: 
  Country: None (occurrence: None)
  Receive Date: 20070511
  Receipt Date: 20070502
  Transmission Date: 20071010
  Serious: Yes (Hospitalization)
  Sender: FDA-Public Use
  Company Number: 163-C5013-06020234

PATIENT
  Age: 65 Year
  Sex: Female
  Weight: 86 kg

DRUGS (5)
  1. CC-5013 (LENALIDOMIDE) (CAPSULES) [Suspect]
     Indication: MULTIPLE MYELOMA
     Dosage: 25 MG, QD ON DAYS 1-21, Q28D, ORAL
     Route: 048
     Dates: start: 20051209
  2. DEXAMETHASONE TAB [Suspect]
     Indication: MULTIPLE MYELOMA
     Dosage: 40 MG, QD ON DAYS 1-4, 9-12, 17-20 Q28D, ORAL
     Route: 048
     Dates: start: 20051209
  3. ZOMETA [Suspect]
     Indication: MULTIPLE MYELOMA
  4. LEVOFLOXACIN [Concomitant]
  5. WARFARIN SODIUM [Concomitant]

REACTIONS (8)
  - ALANINE AMINOTRANSFERASE INCREASED [None]
  - ASPARTATE AMINOTRANSFERASE INCREASED [None]
  - COAGULOPATHY [None]
  - FLUID OVERLOAD [None]
  - HYPOCALCAEMIA [None]
  - HYPOKALAEMIA [None]
  - HYPONATRAEMIA [None]
  - PNEUMONIA [None]
